FAERS Safety Report 8561758-3 (Version None)
Quarter: 2012Q3

REPORT INFORMATION
  Report Type: 
  Country: None (occurrence: None)
  Receive Date: 20120802
  Receipt Date: 20120721
  Transmission Date: 20120928
  Serious: Yes (Death, Hospitalization)
  Sender: FDA-Public Use
  Company Number: PT-BAXTER-2012BAX010849

PATIENT
  Sex: Female
  Weight: 58 kg

DRUGS (11)
  1. PHYSIOSOL IN PLASTIC CONTAINER [Suspect]
     Route: 033
     Dates: end: 20120712
  2. GESTODENE AND ETHINYL ESTRADIOL [Concomitant]
     Route: 065
  3. CINACALCET HYDROCHLORIDE [Concomitant]
     Route: 065
  4. PEPSAMAR [Concomitant]
     Route: 065
  5. HEPARIN [Concomitant]
     Indication: ANTICOAGULANT THERAPY
     Route: 033
  6. EXTRANEAL [Suspect]
     Route: 033
     Dates: end: 20120712
  7. CLONIDINE [Concomitant]
     Route: 065
  8. HUMALOG [Concomitant]
     Route: 065
  9. NIFEDIPINE [Concomitant]
     Route: 065
  10. ARANESP [Concomitant]
     Route: 065
  11. CARVEDILOL [Concomitant]
     Route: 065

REACTIONS (1)
  - CEREBROVASCULAR ACCIDENT [None]
